FAERS Safety Report 9659240 (Version 1)
Quarter: 2013Q4

REPORT INFORMATION
  Report Type: Spontaneous
  Country: US (occurrence: US)
  Receive Date: 20131031
  Receipt Date: 20131031
  Transmission Date: 20140711
  Serious: Yes (Other)
  Sender: FDA-Public Use
  Company Number: US-JNJFOC-20131016257

PATIENT
  Sex: 0

DRUGS (1)
  1. DIPHENHYDRAMINE [Suspect]
     Indication: PRODUCT USED FOR UNKNOWN INDICATION
     Route: 065

REACTIONS (6)
  - Depressed level of consciousness [Unknown]
  - Electrocardiogram QT prolonged [Unknown]
  - Respiratory depression [Unknown]
  - Intentional drug misuse [Unknown]
  - Tachycardia [Unknown]
  - Hypotension [Unknown]
